FAERS Safety Report 10255411 (Version 1)
Quarter: 2014Q2

REPORT INFORMATION
  Report Type: Spontaneous
  Country: US (occurrence: US)
  Receive Date: 20140624
  Receipt Date: 20140624
  Transmission Date: 20141212
  Serious: No
  Sender: FDA-Public Use
  Company Number: US-PFIZER INC-2014172117

PATIENT
  Age: 34 Year
  Sex: Male
  Weight: 67.57 kg

DRUGS (2)
  1. ALPRAZOLAM [Suspect]
     Indication: ANXIETY
     Dosage: UNK, AS NEEDED
     Route: 048
  2. ALPRAZOLAM [Suspect]
     Indication: PANIC DISORDER

REACTIONS (2)
  - Nervousness [Unknown]
  - Product taste abnormal [Unknown]
